FAERS Safety Report 19397778 (Version 2)
Quarter: 2021Q3

REPORT INFORMATION
  Report Type: Spontaneous
  Country: AE (occurrence: AE)
  Receive Date: 20210610
  Receipt Date: 20210906
  Transmission Date: 20211014
  Serious: Yes (Hospitalization)
  Sender: FDA-Public Use
  Company Number: AE-ABBVIE-21P-166-3941869-00

PATIENT

DRUGS (4)
  1. OMACOR [Suspect]
     Active Substance: OMEGA-3-ACID ETHYL ESTERS
     Indication: PRODUCT USED FOR UNKNOWN INDICATION
     Route: 065
  2. LIPANTHYL [Suspect]
     Active Substance: FENOFIBRATE
     Indication: PANCREATITIS ACUTE
  3. LIPANTHYL [Suspect]
     Active Substance: FENOFIBRATE
     Indication: HYPERTRIGLYCERIDAEMIA
     Route: 048
  4. LIPANTHYL [Suspect]
     Active Substance: FENOFIBRATE
     Indication: END STAGE RENAL DISEASE

REACTIONS (1)
  - Pancreatitis acute [Unknown]
